FAERS Safety Report 19456569 (Version 2)
Quarter: 2021Q3

REPORT INFORMATION
  Report Type: Spontaneous
  Country: US (occurrence: US)
  Receive Date: 20210624
  Receipt Date: 20210712
  Transmission Date: 20211014
  Serious: Yes (Hospitalization, Other)
  Sender: FDA-Public Use
  Company Number: US-AUROBINDO-AUR-APL-2021-026058

PATIENT
  Age: 67 Year
  Sex: Female
  Weight: 86.18 kg

DRUGS (8)
  1. GABAPENTIN CAPSULES [Suspect]
     Active Substance: GABAPENTIN
     Indication: RHEUMATOID ARTHRITIS
     Dosage: 800 MILLIGRAM, 3 TIMES A DAY
     Route: 048
  2. GABAPENTIN CAPSULES [Suspect]
     Active Substance: GABAPENTIN
     Indication: OSTEOARTHRITIS
  3. OMEPRAZOLE. [Concomitant]
     Active Substance: OMEPRAZOLE
     Indication: ULCER
     Dosage: 40 MILLIGRAM, TWO TIMES A DAY
     Route: 048
  4. DULOXETINE. [Concomitant]
     Active Substance: DULOXETINE
     Indication: INSOMNIA
  5. OXYCODONE [Concomitant]
     Active Substance: OXYCODONE
     Indication: PAIN
     Dosage: 5 MILLIGRAM, TWO TIMES A DAY, NEEDED
     Route: 048
     Dates: start: 202001
  6. VITAMIN D3 [Concomitant]
     Active Substance: CHOLECALCIFEROL
     Indication: PRODUCT USED FOR UNKNOWN INDICATION
     Dosage: 125/500, DAILY
     Route: 065
     Dates: start: 2015
  7. VITAMIN B12 [Concomitant]
     Active Substance: CYANOCOBALAMIN
     Indication: PRODUCT USED FOR UNKNOWN INDICATION
     Dosage: 1000 MICROGRAM, DAILY
     Route: 048
     Dates: start: 2015
  8. DULOXETINE. [Concomitant]
     Active Substance: DULOXETINE
     Indication: PAIN
     Dosage: 60 MILLIGRAM, DAILY
     Route: 065
     Dates: start: 202001

REACTIONS (5)
  - Vomiting [Unknown]
  - Sepsis [Recovered/Resolved]
  - Pancreatitis [Recovered/Resolved]
  - Pain [Unknown]
  - Product size issue [Unknown]

NARRATIVE: CASE EVENT DATE: 202105
